FAERS Safety Report 9337083 (Version 8)
Quarter: 2014Q2

REPORT INFORMATION
  Report Type: Spontaneous
  Country: US (occurrence: US)
  Receive Date: 20130607
  Receipt Date: 20140630
  Transmission Date: 20141212
  Serious: Yes (Hospitalization, Other)
  Sender: FDA-Public Use
  Company Number: US-MERCK-1306USA000495

PATIENT
  Sex: Female
  Weight: 78.91 kg

DRUGS (5)
  1. FOSAMAX [Suspect]
     Indication: OSTEOPENIA
     Dosage: 70 MG, UNK
     Route: 048
     Dates: start: 2005, end: 2009
  2. ALENDRONATE SODIUM [Suspect]
     Dosage: 70 MG, QW
     Route: 048
     Dates: start: 2009, end: 201107
  3. ACTONEL [Suspect]
     Indication: OSTEOPOROSIS
     Dosage: 35 MG, UNK
     Dates: start: 20041109
  4. ACTONEL [Suspect]
     Indication: OSTEOPENIA
     Dosage: 70 MG, UNK
     Dates: start: 2006, end: 2006
  5. LEVOXYL [Concomitant]
     Indication: THYROID DISORDER
     Dosage: UNK
     Dates: start: 200009

REACTIONS (113)
  - Intramedullary rod insertion [Recovered/Resolved]
  - Humerus fracture [Recovered/Resolved]
  - Incision site infection [Recovered/Resolved]
  - Removal of internal fixation [Unknown]
  - Surgery [Unknown]
  - Diaphragmatic paralysis [Unknown]
  - Cardiac septal defect repair [Unknown]
  - Aortic valve replacement [Unknown]
  - Osteonecrosis [Unknown]
  - Implantable defibrillator insertion [Unknown]
  - Bone graft [Unknown]
  - Surgery [Unknown]
  - Renal failure [Unknown]
  - Heart transplant [Unknown]
  - Cardiac pacemaker insertion [Unknown]
  - Spinal operation [Unknown]
  - Surgery [Unknown]
  - Ventricular assist device insertion [Unknown]
  - Heart valve operation [Unknown]
  - Spinal fusion surgery [Unknown]
  - Medical device pain [Unknown]
  - Humerus fracture [Unknown]
  - Spinal cord operation [Unknown]
  - Lung infiltration [Unknown]
  - Hip arthroplasty [Unknown]
  - Spinal laminectomy [Unknown]
  - Benign neoplasm of spinal cord [Unknown]
  - Femur fracture [Recovered/Resolved]
  - Fracture nonunion [Unknown]
  - Low turnover osteopathy [Unknown]
  - Depression [Not Recovered/Not Resolved]
  - Anxiety [Not Recovered/Not Resolved]
  - Foot fracture [Unknown]
  - Foot fracture [Unknown]
  - Pain [Recovered/Resolved]
  - Hypertension [Unknown]
  - Adverse event [Unknown]
  - Spinal osteoarthritis [Unknown]
  - Joint injury [Unknown]
  - Sinus operation [Unknown]
  - Anaemia [Unknown]
  - White blood cells urine [Unknown]
  - Sleep disorder [Unknown]
  - Radiculitis lumbosacral [Unknown]
  - Schwannoma [Unknown]
  - Radiotherapy to bone [Unknown]
  - Ligament sprain [Unknown]
  - Cardiac valve disease [Unknown]
  - Hepatitis C [Unknown]
  - Hypothyroidism [Unknown]
  - Hypercholesterolaemia [Unknown]
  - Neuralgia [Unknown]
  - Pathological fracture [Unknown]
  - Herpes zoster [Unknown]
  - Haemorrhoids [Unknown]
  - Blood heavy metal increased [Unknown]
  - Arterial insufficiency [Unknown]
  - Fall [Unknown]
  - Laryngeal ulceration [Unknown]
  - Dysphonia [Unknown]
  - Eustachian tube dysfunction [Unknown]
  - Hyperlipidaemia [Unknown]
  - Anaemia of chronic disease [Not Recovered/Not Resolved]
  - Pneumonia [Unknown]
  - Ligament sprain [Unknown]
  - Ulcer [Unknown]
  - Lipoma [Unknown]
  - Cardiac disorder [Unknown]
  - Bronchitis [Unknown]
  - Arthropod bite [Unknown]
  - Onychomycosis [Unknown]
  - Respiratory tract infection [Unknown]
  - Plantar fasciitis [Unknown]
  - Acrochordon [Unknown]
  - Schwannoma [Unknown]
  - Sleep apnoea syndrome [Unknown]
  - Asthma [Not Recovered/Not Resolved]
  - Endometriosis [Unknown]
  - Osteoporosis [Unknown]
  - Bronchitis [Unknown]
  - Neoplasm [Unknown]
  - Lenticular opacities [Unknown]
  - Fracture [Unknown]
  - Hepatitis C [Unknown]
  - Hyperparathyroidism [Unknown]
  - Urine calcium increased [Unknown]
  - Vitamin D increased [Unknown]
  - Blood parathyroid hormone increased [Unknown]
  - Vitamin D deficiency [Unknown]
  - Atrial fibrillation [Unknown]
  - Radiotherapy [Unknown]
  - Neurilemmoma benign [Unknown]
  - Subarachnoid haemorrhage [Unknown]
  - Implant site infection [Recovered/Resolved]
  - Cytomegalovirus infection [Unknown]
  - Acne [Unknown]
  - Foot fracture [Recovering/Resolving]
  - Chronic sinusitis [Not Recovered/Not Resolved]
  - Tendonitis [Unknown]
  - Conjunctivitis [Unknown]
  - Bursitis [Unknown]
  - Nerve injury [Unknown]
  - Musculoskeletal pain [Not Recovered/Not Resolved]
  - Back pain [Unknown]
  - Constipation [Unknown]
  - Gastrooesophageal reflux disease [Unknown]
  - Back pain [Unknown]
  - Oedema peripheral [Unknown]
  - Arthralgia [Unknown]
  - Arthralgia [Unknown]
  - Constipation [Unknown]
  - Arthralgia [Unknown]
  - Dysphagia [Unknown]
